FAERS Safety Report 23092269 (Version 6)
Quarter: 2024Q1

REPORT INFORMATION
  Report Type: Spontaneous
  Country: JP (occurrence: JP)
  Receive Date: 20231021
  Receipt Date: 20240123
  Transmission Date: 20240409
  Serious: Yes (Hospitalization, Other)
  Sender: FDA-Public Use
  Company Number: JP-ABBVIE-5458365

PATIENT
  Age: 53 Year
  Sex: Male
  Weight: 53 kg

DRUGS (7)
  1. RINVOQ [Suspect]
     Active Substance: UPADACITINIB
     Indication: Colitis ulcerative
     Dosage: FORM STRENGTH: 15 MILLIGRAM
     Route: 048
     Dates: start: 20230408, end: 20230421
  2. RINVOQ [Suspect]
     Active Substance: UPADACITINIB
     Indication: Colitis ulcerative
     Dosage: FORM STRENGTH: 15 MILLIGRAM
     Route: 048
     Dates: start: 20230422, end: 20231021
  3. MIRIKIZUMAB [Suspect]
     Active Substance: MIRIKIZUMAB
     Indication: Colitis ulcerative
     Route: 065
     Dates: start: 20231030, end: 20231031
  4. FILGOTINIB [Suspect]
     Active Substance: FILGOTINIB
     Indication: Colitis ulcerative
     Dosage: 100 MILLIGRAM
     Route: 065
     Dates: start: 20231021, end: 20231027
  5. FILGOTINIB [Suspect]
     Active Substance: FILGOTINIB
     Indication: Colitis ulcerative
     Dosage: 100 MILLIGRAM?LAST ADMIN DATE-2023
     Route: 065
     Dates: start: 20230203
  6. MAGNESIUM OXIDE [Concomitant]
     Active Substance: MAGNESIUM OXIDE
     Indication: Constipation
     Dosage: TIME INTERVAL: 0.33333333 DAYS: 990 MILLIGRAM?STRENGTH- 330 MG
     Dates: start: 20200207
  7. CLOSTRIDIUM BUTYRICUM SPORES STRAIN M-55 [Concomitant]
     Active Substance: CLOSTRIDIUM BUTYRICUM SPORES STRAIN M-55
     Indication: Diarrhoea
     Dosage: TIME INTERVAL: 0.33333333 DAYS: 3 GRAM
     Dates: start: 20181012

REACTIONS (11)
  - Malaise [Recovered/Resolved]
  - Drug eruption [Recovered/Resolved]
  - Epstein-Barr virus infection reactivation [Recovered/Resolved]
  - Epstein-Barr virus infection [Recovered/Resolved]
  - Pyrexia [Recovered/Resolved]
  - C-reactive protein increased [Recovering/Resolving]
  - Drug ineffective [Unknown]
  - Platelet count increased [Recovered/Resolved]
  - Colitis ulcerative [Not Recovered/Not Resolved]
  - Chills [Recovered/Resolved]
  - Drug intolerance [Unknown]

NARRATIVE: CASE EVENT DATE: 20230101
